FAERS Safety Report 12190799 (Version 2)
Quarter: 2016Q2

REPORT INFORMATION
  Report Type: Spontaneous
  Country: US (occurrence: US)
  Receive Date: 20160318
  Receipt Date: 20160404
  Transmission Date: 20160815
  Serious: No
  Sender: FDA-Public Use
  Company Number: US-JNJFOC-20160313541

PATIENT
  Sex: Male

DRUGS (5)
  1. AMLODIPINE [Concomitant]
     Active Substance: AMLODIPINE BESYLATE
     Indication: BLOOD PRESSURE MEASUREMENT
     Route: 065
  2. DURAGESIC [Suspect]
     Active Substance: FENTANYL
     Indication: SURGERY
     Route: 062
  3. HYDROCODONE [Concomitant]
     Active Substance: HYDROCODONE
     Indication: PAIN
     Dosage: 4 TABLETS A DAY, MORNING,NOON AND NIGHT
     Route: 065
  4. MELOXICAM. [Concomitant]
     Active Substance: MELOXICAM
     Route: 065
  5. DURAGESIC [Suspect]
     Active Substance: FENTANYL
     Indication: SURGERY
     Route: 062

REACTIONS (4)
  - Tremor [Recovered/Resolved]
  - Chills [Recovered/Resolved]
  - Withdrawal syndrome [Recovered/Resolved]
  - Incorrect drug administration duration [Unknown]
